FAERS Safety Report 9833137 (Version 1)
Quarter: 2014Q1

REPORT INFORMATION
  Report Type: Spontaneous
  Country: NL (occurrence: NL)
  Receive Date: 20140121
  Receipt Date: 20140121
  Transmission Date: 20141002
  Serious: Yes (Hospitalization)
  Sender: FDA-Public Use
  Company Number: NL-BAYER-2014-005687

PATIENT
  Age: 47 Year
  Sex: Female

DRUGS (2)
  1. ALEVE SELECT 275MG [Suspect]
     Indication: HEADACHE
     Dosage: 550 MG, QD
     Dates: start: 201308
  2. NUVARING [Interacting]
     Indication: CONTRACEPTION

REACTIONS (4)
  - Venous thrombosis [Recovering/Resolving]
  - Epilepsy [Recovering/Resolving]
  - Drug interaction [Recovering/Resolving]
  - Headache [Recovering/Resolving]
